FAERS Safety Report 22765451 (Version 3)
Quarter: 2023Q4

REPORT INFORMATION
  Report Type: Spontaneous
  Country: JP (occurrence: JP)
  Receive Date: 20230731
  Receipt Date: 20231109
  Transmission Date: 20240110
  Serious: Yes (Hospitalization, Other)
  Sender: FDA-Public Use
  Company Number: JP-ONO-2023JP017793

PATIENT
  Age: 64 Year
  Sex: Male

DRUGS (2)
  1. OPDIVO [Suspect]
     Active Substance: NIVOLUMAB
     Indication: Oesophageal carcinoma
     Dosage: UNK
     Route: 041
     Dates: start: 202206, end: 202303
  2. OPDIVO [Suspect]
     Active Substance: NIVOLUMAB
     Indication: Gastric cancer

REACTIONS (6)
  - Eye symptom [Unknown]
  - Autoimmune eye disorder [Recovering/Resolving]
  - Noninfective conjunctivitis [Unknown]
  - Rash [Unknown]
  - Stevens-Johnson syndrome [Recovering/Resolving]
  - Anastomotic ulcer haemorrhage [Recovering/Resolving]

NARRATIVE: CASE EVENT DATE: 20230601
